FAERS Safety Report 21535527 (Version 2)
Quarter: 2022Q4

REPORT INFORMATION
  Report Type: Spontaneous
  Country: JP (occurrence: JP)
  Receive Date: 20221101
  Receipt Date: 20221117
  Transmission Date: 20230113
  Serious: Yes (Hospitalization, Other)
  Sender: FDA-Public Use
  Company Number: JP-BRISTOL-MYERS SQUIBB COMPANY-2022-129937

PATIENT
  Age: 87 Year
  Sex: Male

DRUGS (4)
  1. VIDAZA [Suspect]
     Active Substance: AZACITIDINE
     Indication: Blastic plasmacytoid dendritic cell neoplasia
     Route: 042
  2. VIDAZA [Suspect]
     Active Substance: AZACITIDINE
     Route: 042
  3. VENETOCLAX [Suspect]
     Active Substance: VENETOCLAX
     Indication: Blastic plasmacytoid dendritic cell neoplasia
     Route: 065
  4. VENETOCLAX [Suspect]
     Active Substance: VENETOCLAX
     Route: 065

REACTIONS (2)
  - Bacterial infection [Unknown]
  - Tumour lysis syndrome [Unknown]
